FAERS Safety Report 9542699 (Version 1)
Quarter: 2013Q2

REPORT INFORMATION
  Report Type: Spontaneous
  Country: US (occurrence: None)
  Receive Date: 20130524
  Receipt Date: 20130524
  Transmission Date: 20140414
  Serious: Yes (Other)
  Sender: FDA-Public Use
  Company Number: PHEH2013US000947

PATIENT
  Age: 33 Year
  Sex: Female
  Weight: 61.2 kg

DRUGS (3)
  1. GILENYA [Suspect]
     Indication: MULTIPLE SCLEROSIS
     Route: 048
     Dates: start: 20130107
  2. AVONEX (INTERFERON BETA-1A) [Concomitant]
  3. CONTRACEPTIVES (NO INGREDIENTS/SUBSTANCES) [Concomitant]

REACTIONS (6)
  - Urinary tract infection [None]
  - Heart rate increased [None]
  - Eye pain [None]
  - Dizziness [None]
  - Abnormal sensation in eye [None]
  - Ocular discomfort [None]
